FAERS Safety Report 6731712-2 (Version None)
Quarter: 2010Q2

REPORT INFORMATION
  Report Type: 
  Country: None (occurrence: None)
  Receive Date: 20100518
  Receipt Date: 20100518
  Transmission Date: 20101027
  Serious: Yes (Hospitalization)
  Sender: FDA-Public Use
  Company Number: None

PATIENT
  Age: 74 Year
  Sex: Male

DRUGS (4)
  1. FUROSEMIDE [Suspect]
     Indication: OEDEMA
     Dosage: 20MG DAILY PO
     Route: 048
  2. KEPPRA [Concomitant]
  3. MULTIVIT [Concomitant]
  4. COUMADIN [Concomitant]

REACTIONS (5)
  - ANGIOEDEMA [None]
  - DYSPHAGIA [None]
  - DYSPNOEA [None]
  - RESPIRATORY DISTRESS [None]
  - STRIDOR [None]
